FAERS Safety Report 7936138-1 (Version None)
Quarter: 2011Q4

REPORT INFORMATION
  Report Type: 
  Country: None (occurrence: None)
  Receive Date: 20111123
  Receipt Date: 20111116
  Transmission Date: 20120403
  Serious: Yes (Hospitalization)
  Sender: FDA-Public Use
  Company Number: FR-BRISTOL-MYERS SQUIBB COMPANY-16219339

PATIENT
  Age: 87 Year
  Sex: Female

DRUGS (9)
  1. COUMADIN [Suspect]
     Dosage: 1 D.F:1 FILM-COATED TABLET
     Route: 048
     Dates: start: 20100801, end: 20110423
  2. LEVOTHYROXINE SODIUM [Concomitant]
     Dosage: 1 D.F:25 UNITS NOT SPECIFIED
  3. ALLOPURINOL [Concomitant]
     Dosage: 1 D.F:10 UNITS NOT SPECIFIED
  4. AMLODIPINE BESYLATE [Concomitant]
     Dosage: 1 D.F:10 UNITS NOT SPECIFIED
  5. ACETAMINOPHEN [Concomitant]
  6. FERROUS SULFATE TAB [Concomitant]
  7. INSULATARD NPH HUMAN [Concomitant]
  8. EUPRESSYL [Suspect]
     Dosage: 1 D.F:1 CAPSULE
     Route: 048
     Dates: end: 20110423
  9. LYRICA [Suspect]
     Dosage: 1 CAPSULE
     Route: 048
     Dates: end: 20110423

REACTIONS (4)
  - HYPOTENSION [None]
  - JOINT INJURY [None]
  - HEAD INJURY [None]
  - FALL [None]
